FAERS Safety Report 6262227-6 (Version None)
Quarter: 2009Q3

REPORT INFORMATION
  Report Type: 
  Country: None (occurrence: None)
  Receive Date: 20090708
  Receipt Date: 20090708
  Transmission Date: 20100115
  Serious: Yes (Disabling)
  Sender: FDA-Public Use
  Company Number: None

PATIENT
  Sex: Male
  Weight: 89.8122 kg

DRUGS (1)
  1. ZICAM [Suspect]
     Indication: ANOSMIA
     Dosage: DAILY 2 TWICE A DAY
     Dates: start: 20080401, end: 20080501

REACTIONS (1)
  - ANOSMIA [None]
